FAERS Safety Report 24934993 (Version 1)
Quarter: 2025Q1

REPORT INFORMATION
  Report Type: Spontaneous
  Country: US (occurrence: US)
  Receive Date: 20250206
  Receipt Date: 20250206
  Transmission Date: 20250408
  Serious: Yes (Other)
  Sender: AMGEN
  Company Number: US-AMGEN-USASP2025019698

PATIENT

DRUGS (1)
  1. PROLIA [Suspect]
     Active Substance: DENOSUMAB
     Indication: Product used for unknown indication
     Route: 065
     Dates: start: 2020

REACTIONS (3)
  - Wrist fracture [Unknown]
  - Fall [Unknown]
  - Dental care [Unknown]

NARRATIVE: CASE EVENT DATE: 20241223
